FAERS Safety Report 17047127 (Version 1)
Quarter: 2019Q4

REPORT INFORMATION
  Report Type: Spontaneous
  Country: US (occurrence: US)
  Receive Date: 20191119
  Receipt Date: 20191119
  Transmission Date: 20200122
  Serious: No
  Sender: FDA-Public Use
  Company Number: US-ACCORD-073871

PATIENT
  Age: 51 Year
  Sex: Male
  Weight: 104.33 kg

DRUGS (1)
  1. HYDROCHLOROTHIAZIDE ACCORD [Suspect]
     Active Substance: HYDROCHLOROTHIAZIDE
     Indication: HYPERTENSION
     Dosage: STRENGTH: 12.5 MG
     Route: 048
     Dates: start: 2007

REACTIONS (6)
  - Muscle spasms [Recovering/Resolving]
  - Burning sensation [Unknown]
  - Arthralgia [Recovered/Resolved]
  - Recalled product administered [Unknown]
  - Hypoaesthesia [Recovering/Resolving]
  - Fatigue [Unknown]
